FAERS Safety Report 7870045-8 (Version None)
Quarter: 2011Q4

REPORT INFORMATION
  Report Type: 
  Country: None (occurrence: None)
  Receive Date: 20111028
  Receipt Date: 20111028
  Transmission Date: 20120403
  Serious: No
  Sender: FDA-Public Use
  Company Number: None

PATIENT
  Sex: Female
  Weight: 86.9 kg

DRUGS (4)
  1. LEUCOVORIN CALCIUM [Suspect]
     Dosage: 792 MG
  2. ELOXATIN [Suspect]
     Dosage: 129 MG
  3. FLUOROURACIL [Suspect]
     Dosage: 4158 MG
  4. BEVACIZUMAB (RHUMAB VEGF) [Suspect]
     Dosage: 434 MG

REACTIONS (1)
  - TOOTH ABSCESS [None]
